FAERS Safety Report 19998415 (Version 1)
Quarter: 2021Q4

REPORT INFORMATION
  Report Type: Spontaneous
  Country: US (occurrence: US)
  Receive Date: 20211027
  Receipt Date: 20211027
  Transmission Date: 20220304
  Serious: No
  Sender: FDA-Public Use
  Company Number: US-DRREDDYS-SPO/USA/21/0142758

PATIENT
  Age: 17 Year
  Sex: Female

DRUGS (1)
  1. ACCUTANE [Suspect]
     Active Substance: ISOTRETINOIN
     Indication: Product used for unknown indication
     Dosage: RMA ISSUE DATE:11 AUGUST 2021 5:03:25 PM,16 SEPTEMBER 2021 2:25:22 PM

REACTIONS (1)
  - Headache [Unknown]
